FAERS Safety Report 24981741 (Version 1)
Quarter: 2025Q1

REPORT INFORMATION
  Report Type: Spontaneous
  Country: GB (occurrence: GB)
  Receive Date: 20250218
  Receipt Date: 20250218
  Transmission Date: 20250409
  Serious: Yes (Other)
  Sender: ADVANZ PHARMA
  Company Number: None

PATIENT

DRUGS (12)
  1. PREDNISOLONE [Suspect]
     Active Substance: PREDNISOLONE
  2. POLYETHYLENE GLYCOLS [Concomitant]
     Active Substance: POLYETHYLENE GLYCOLS
  3. ENOXAPARIN [Concomitant]
     Active Substance: ENOXAPARIN
  4. TIOTROPIUM [Concomitant]
     Active Substance: TIOTROPIUM
  5. CHOLECALCIFEROL [Concomitant]
     Active Substance: CHOLECALCIFEROL
  6. Dermol cream [Concomitant]
  7. NICOTINE [Concomitant]
     Active Substance: NICOTINE
  8. IPRATROPIUM [Concomitant]
     Active Substance: IPRATROPIUM
  9. FORMOTEROL [Concomitant]
     Active Substance: FORMOTEROL
  10. ALBUTEROL [Concomitant]
     Active Substance: ALBUTEROL
  11. HYPROMELLOSES [Concomitant]
     Active Substance: HYPROMELLOSES
  12. AMLODIPINE [Concomitant]
     Active Substance: AMLODIPINE BESYLATE

REACTIONS (1)
  - Hyperglycaemia [Unknown]
